FAERS Safety Report 7115102-9 (Version None)
Quarter: 2010Q4

REPORT INFORMATION
  Report Type: 
  Country: None (occurrence: None)
  Receive Date: 20101117
  Receipt Date: 20101117
  Transmission Date: 20110411
  Serious: Yes (Death)
  Sender: FDA-Public Use
  Company Number: None

PATIENT
  Age: 80 Year
  Sex: Female

DRUGS (4)
  1. REVLIMID [Suspect]
     Indication: MYELODYSPLASTIC SYNDROME
     Dosage: 10MG DAILY ORALLY
     Route: 048
  2. OMEPRAZOLE [Concomitant]
  3. ATENOLOL [Concomitant]
  4. VICODIN [Concomitant]

REACTIONS (4)
  - DRUG INTOLERANCE [None]
  - HEADACHE [None]
  - RASH [None]
  - STOMATITIS [None]
